FAERS Safety Report 9566819 (Version 1)
Quarter: 2013Q3

REPORT INFORMATION
  Report Type: Spontaneous
  Country: US (occurrence: US)
  Receive Date: 20130930
  Receipt Date: 20130930
  Transmission Date: 20140515
  Serious: No
  Sender: FDA-Public Use
  Company Number: US-AMGEN-USASP2012077456

PATIENT
  Sex: Female
  Weight: 92.97 kg

DRUGS (18)
  1. ENBREL [Suspect]
     Indication: RHEUMATOID ARTHRITIS
     Dosage: 50 MG, 2 TIMES/WK
     Route: 058
  2. ADVIL                              /00044201/ [Concomitant]
     Dosage: UNK
  3. IBUPROFEN [Concomitant]
     Dosage: UNK
  4. CYMBALTA [Concomitant]
     Dosage: 20 MG, UNK
  5. CENTRUM                            /07499601/ [Concomitant]
     Dosage: UNK
  6. CALTRATE D                         /00944201/ [Concomitant]
     Dosage: UNK (TAB 600-800)
  7. LEUCOVORIN CA [Concomitant]
     Dosage: 5 MG, UNK
  8. METHOTREXATE [Concomitant]
     Dosage: 2.5 MG, UNK
  9. PREDNISON [Concomitant]
     Dosage: 1 MG, UNK
  10. SLOW FE FOLIC [Concomitant]
     Dosage: 142 MG, UNK
  11. OMEPRAZOLE [Concomitant]
     Dosage: 20 MG, UNK
  12. FOLIC ACID [Concomitant]
     Dosage: 1 MG, UNK
  13. ROLAIDS                            /00069401/ [Concomitant]
     Dosage: UNK (CHW)
  14. LUNESTA [Concomitant]
     Dosage: 1 MG, UNK
  15. OMEGA-3                            /01866101/ [Concomitant]
     Dosage: UNK
  16. TYLENOL                            /00020001/ [Concomitant]
     Dosage: 500 MG, UNK
  17. INDOMETHACIN                       /00003801/ [Concomitant]
     Dosage: 75 MG, UNK
  18. LEVOXYL [Concomitant]
     Dosage: UNK (25MCG)

REACTIONS (2)
  - Bone pain [Unknown]
  - Agitation [Unknown]
